FAERS Safety Report 8438026 (Version 4)
Quarter: 2015Q3

REPORT INFORMATION
  Report Type: Report from Study
  Country: JP (occurrence: JP)
  Receive Date: 20120302
  Receipt Date: 20150907
  Transmission Date: 20151125
  Serious: Yes (Other)
  Sender: FDA-Public Use
  Company Number: JP-ROCHE-1043966

PATIENT

DRUGS (6)
  1. OXALIPLATIN. [Suspect]
     Active Substance: OXALIPLATIN
     Indication: COLORECTAL CANCER
     Route: 065
  2. 5-FU [Suspect]
     Active Substance: FLUOROURACIL
     Route: 065
  3. BEVACIZUMAB [Suspect]
     Active Substance: BEVACIZUMAB
     Indication: COLORECTAL CANCER
     Dosage: DAY 1
     Route: 042
  4. FOLINIC ACID [Suspect]
     Active Substance: LEUCOVORIN
     Indication: COLORECTAL CANCER
     Route: 065
  5. 5-FU [Suspect]
     Active Substance: FLUOROURACIL
     Indication: COLORECTAL CANCER
     Dosage: BOLUS
     Route: 065
  6. IRINOTECAN [Suspect]
     Active Substance: IRINOTECAN
     Indication: COLORECTAL CANCER
     Dosage: DAY 1
     Route: 065

REACTIONS (19)
  - Neurotoxicity [Unknown]
  - Hypersensitivity [Unknown]
  - Thrombocytopenia [Unknown]
  - Febrile neutropenia [Unknown]
  - Nausea [Unknown]
  - Neutropenia [Unknown]
  - Decreased appetite [Unknown]
  - Diarrhoea [Unknown]
  - Leukopenia [Unknown]
  - Anaemia [Unknown]
  - Stomatitis [Unknown]
  - Proteinuria [Unknown]
  - Hypertension [Unknown]
  - Vomiting [Unknown]
  - Embolism [Unknown]
  - Fatigue [Unknown]
  - Haemorrhage [Unknown]
  - Epistaxis [Unknown]
  - Thrombocytosis [Unknown]
